FAERS Safety Report 8806425 (Version 1)
Quarter: 2012Q4

REPORT INFORMATION
  Report Type: 
  Country: CO (occurrence: CO)
  Receive Date: 20120925
  Receipt Date: 20120925
  Transmission Date: 20130627
  Serious: Yes (Other)
  Sender: FDA-Public Use
  Company Number: CO-UCBSA-067041

PATIENT
  Sex: Male

DRUGS (1)
  1. KEPPRA [Suspect]
     Indication: EPILEPSY
     Dosage: SOLUTION
     Dates: end: 201109

REACTIONS (3)
  - Encephalopathy [Unknown]
  - Psychotic disorder [Unknown]
  - Abnormal behaviour [Unknown]
